FAERS Safety Report 8267527 (Version 6)
Quarter: 2016Q1

REPORT INFORMATION
  Report Type: Spontaneous
  Country: FR (occurrence: FR)
  Receive Date: 20111129
  Receipt Date: 20160208
  Transmission Date: 20160526
  Serious: Yes (Hospitalization, Other)
  Sender: FDA-Public Use
  Company Number: FR-BRISTOL-MYERS SQUIBB COMPANY-16246134

PATIENT
  Age: 30 Year
  Sex: Female

DRUGS (8)
  1. FOSFOCINE [Suspect]
     Active Substance: FOSFOMYCIN
     Indication: MENINGITIS
     Dosage: UNK
     Route: 048
     Dates: start: 20100901, end: 20100927
  2. VANCOMYCIN [Suspect]
     Active Substance: VANCOMYCIN
     Indication: MENINGITIS
     Dosage: UNK
     Route: 042
     Dates: start: 20100903, end: 20100927
  3. AZACTAM [Suspect]
     Active Substance: AZTREONAM
     Indication: MENINGITIS
     Dosage: 1 G, QD
     Route: 042
     Dates: start: 20100917
  4. VISIPAQUE [Suspect]
     Active Substance: IODIXANOL
     Indication: PRODUCT USED FOR UNKNOWN INDICATION
     Dosage: 1 DF, QD
     Route: 042
     Dates: start: 20100921, end: 20100921
  5. CIFLOX                             /00697202/ [Suspect]
     Active Substance: CIPROFLOXACIN HYDROCHLORIDE
     Indication: MENINGITIS
     Dosage: UNK
     Route: 065
     Dates: start: 20100923, end: 20100925
  6. CLAFORAN [Suspect]
     Active Substance: CEFOTAXIME SODIUM
     Indication: MENINGITIS
     Dosage: UNK
     Route: 042
     Dates: start: 20100901, end: 20100903
  7. GENTAMICIN. [Suspect]
     Active Substance: GENTAMICIN
     Indication: MENINGITIS
     Dosage: UNK
     Route: 042
     Dates: start: 20100903, end: 20100925
  8. BACTRIM [Suspect]
     Active Substance: SULFAMETHOXAZOLE\TRIMETHOPRIM
     Indication: MENINGITIS
     Dosage: UNK
     Route: 065
     Dates: start: 20100917, end: 20100923

REACTIONS (2)
  - Off label use [Unknown]
  - Drug reaction with eosinophilia and systemic symptoms [Recovered/Resolved]

NARRATIVE: CASE EVENT DATE: 20100925
